FAERS Safety Report 11157739 (Version 3)
Quarter: 2015Q3

REPORT INFORMATION
  Report Type: Report from Study
  Country: US (occurrence: US)
  Receive Date: 20150603
  Receipt Date: 20150923
  Transmission Date: 20151125
  Serious: Yes (Other)
  Sender: FDA-Public Use
  Company Number: US-AMGEN-USASP2015052528

PATIENT
  Age: 59 Year
  Sex: Female

DRUGS (4)
  1. ENBREL [Suspect]
     Active Substance: ETANERCEPT
     Indication: ARTHRITIS REACTIVE
     Dosage: 50 MG, QWK
     Route: 058
     Dates: start: 2000
  2. ENBREL [Suspect]
     Active Substance: ETANERCEPT
     Indication: RHEUMATOID ARTHRITIS
  3. REMICADE [Concomitant]
     Active Substance: INFLIXIMAB
     Indication: CELLULITIS
     Dosage: UNK
     Dates: start: 2013
  4. INDOMETHACIN                       /00003801/ [Concomitant]
     Active Substance: INDOMETHACIN
     Indication: GASTRIC ULCER
     Dosage: UNK
     Dates: start: 2012

REACTIONS (6)
  - Arthritis infective [Recovered/Resolved]
  - Gastric ulcer [Recovered/Resolved]
  - Injection site reaction [Unknown]
  - Drug effect decreased [Unknown]
  - Cellulitis [Unknown]
  - Off label use [Not Recovered/Not Resolved]

NARRATIVE: CASE EVENT DATE: 2010
